FAERS Safety Report 10967492 (Version 3)
Quarter: 2015Q2

REPORT INFORMATION
  Report Type: Spontaneous
  Country: US (occurrence: US)
  Receive Date: 20150330
  Receipt Date: 20150528
  Transmission Date: 20150821
  Serious: No
  Sender: FDA-Public Use
  Company Number: US-PFIZER INC-2015104997

PATIENT
  Age: 40 Year
  Sex: Female
  Weight: 76.19 kg

DRUGS (5)
  1. HYZAAR [Concomitant]
     Active Substance: HYDROCHLOROTHIAZIDE\LOSARTAN POTASSIUM
     Dosage: UNK
  2. SUTENT [Suspect]
     Active Substance: SUNITINIB MALATE
     Indication: METASTATIC RENAL CELL CARCINOMA
     Dosage: 50 MG, UNK
  3. SUTENT [Suspect]
     Active Substance: SUNITINIB MALATE
     Dosage: 37.5 MG, CYCLIC (37.5 MG 28 DAYS ON/14 DAYS OFF)
     Dates: start: 20140301
  4. COMPAZINE [Concomitant]
     Active Substance: PROCHLORPERAZINE MALEATE
     Dosage: UNK
  5. AMLODIPINE [Concomitant]
     Active Substance: AMLODIPINE BESYLATE
     Dosage: UNK

REACTIONS (11)
  - Dysgeusia [Unknown]
  - Thyroid disorder [Unknown]
  - Yellow skin [Unknown]
  - Pruritus [Unknown]
  - Contusion [Unknown]
  - Oral pain [Unknown]
  - Hair colour changes [Unknown]
  - Blister [Unknown]
  - Onychoclasis [Unknown]
  - Blood pressure increased [Unknown]
  - Decreased appetite [Unknown]
